FAERS Safety Report 16816050 (Version 1)
Quarter: 2019Q3

REPORT INFORMATION
  Report Type: Spontaneous
  Country: US (occurrence: US)
  Receive Date: 20190917
  Receipt Date: 20190917
  Transmission Date: 20191005
  Serious: Yes (Other)
  Sender: FDA-Public Use
  Company Number: US-COLGATE PALMOLIVE COMPANY-20190902383

PATIENT
  Sex: Female

DRUGS (1)
  1. LADY SPEED INVISIBLE DRY ANTIPERSPIRANT DEODORANT [Suspect]
     Active Substance: ALUMINUM ZIRCONIUM TETRACHLOROHYDREX GLY
     Indication: PERSONAL HYGIENE
     Dosage: UNKNOWN DOSE, QD
     Dates: start: 2014, end: 20190907

REACTIONS (1)
  - Chronic kidney disease [Not Recovered/Not Resolved]

NARRATIVE: CASE EVENT DATE: 2016
